FAERS Safety Report 8377564-9 (Version None)
Quarter: 2012Q2

REPORT INFORMATION
  Report Type: 
  Country: None (occurrence: None)
  Receive Date: 20120522
  Receipt Date: 20120517
  Transmission Date: 20120825
  Serious: Yes (Other)
  Sender: FDA-Public Use
  Company Number: VE-PFIZER INC-2012113372

PATIENT
  Age: 67 Year
  Sex: Female

DRUGS (3)
  1. CADUET [Suspect]
     Indication: HYPERTENSION
     Dosage: AMLODIPINE/ATORVASTATIN 5/40 MG, 1X/DAY
     Route: 048
  2. CADUET [Suspect]
     Indication: HYPERCHOLESTEROLAEMIA
  3. NORVASC [Concomitant]

REACTIONS (2)
  - OVARIAN CANCER [None]
  - BLOOD PRESSURE DECREASED [None]
